FAERS Safety Report 25591214 (Version 1)
Quarter: 2025Q3

REPORT INFORMATION
  Report Type: Spontaneous
  Country: KR (occurrence: KR)
  Receive Date: 20250722
  Receipt Date: 20250722
  Transmission Date: 20251020
  Serious: Yes (Other)
  Sender: MYLAN
  Company Number: KR-MYLANLABS-2025M1061494

PATIENT
  Sex: Male

DRUGS (4)
  1. LYRICA [Suspect]
     Active Substance: PREGABALIN
     Indication: Bell^s palsy
     Dosage: 75 MILLIGRAM, QD
     Dates: start: 20230509, end: 20230509
  2. ACECLOFENAC [Suspect]
     Active Substance: ACECLOFENAC
     Indication: Bell^s palsy
     Dosage: 100 MILLIGRAM, QD
     Dates: start: 20230509, end: 20230509
  3. OMEPRAZOLE [Suspect]
     Active Substance: OMEPRAZOLE
     Indication: Bell^s palsy
     Dosage: 10 MILLIGRAM, QD
     Dates: start: 20230509, end: 20230509
  4. MAGNESIUM\PYRIDOXINE [Suspect]
     Active Substance: MAGNESIUM\PYRIDOXINE
     Indication: Bell^s palsy
     Dosage: 2 DOSAGE FORM, QD
     Dates: start: 20230509, end: 20230509

REACTIONS (3)
  - Angioedema [Recovered/Resolved]
  - Dyspnoea [Recovered/Resolved]
  - Off label use [Unknown]

NARRATIVE: CASE EVENT DATE: 20230509
